FAERS Safety Report 8397283 (Version 2)
Quarter: 2013Q4

REPORT INFORMATION
  Report Type: Spontaneous
  Country: US (occurrence: US)
  Receive Date: 20120209
  Receipt Date: 20131106
  Transmission Date: 20140711
  Serious: Yes (Other)
  Sender: FDA-Public Use
  Company Number: US-BAYER-2012-011736

PATIENT
  Age: 27 Year
  Sex: Female

DRUGS (2)
  1. MIRENA [Suspect]
     Indication: MENORRHAGIA
     Dosage: 20 MCG/24HR, CONT
     Route: 015
     Dates: start: 200507, end: 200607
  2. MIRENA [Suspect]
     Indication: CONTRACEPTION
     Dosage: 20 MCG/24HR, CONT
     Route: 015
     Dates: start: 20111219, end: 20120126

REACTIONS (11)
  - Device dislocation [None]
  - Breast pain [Recovering/Resolving]
  - Tenderness [Recovering/Resolving]
  - Weight increased [Recovering/Resolving]
  - Libido decreased [Recovering/Resolving]
  - Abdominal distension [Recovering/Resolving]
  - Depressed mood [Recovering/Resolving]
  - Nausea [None]
  - Abdominal pain lower [None]
  - Genital haemorrhage [None]
  - Back pain [None]
